FAERS Safety Report 10190392 (Version 1)
Quarter: 2014Q2

REPORT INFORMATION
  Report Type: Spontaneous
  Country: US (occurrence: US)
  Receive Date: 20140522
  Receipt Date: 20140522
  Transmission Date: 20141212
  Serious: Yes (Death, Other)
  Sender: FDA-Public Use
  Company Number: US-GILEAD-2014-0103162

PATIENT
  Sex: Female

DRUGS (13)
  1. LETAIRIS [Suspect]
     Indication: PULMONARY ARTERIAL HYPERTENSION
     Dosage: 10 MG, QD
     Route: 065
     Dates: start: 20130719, end: 20140428
  2. SPIRIVA [Concomitant]
  3. REMODULIN [Concomitant]
  4. BIOTIN [Concomitant]
  5. FUROSEMIDE [Concomitant]
  6. NEURONTIN [Concomitant]
  7. CELEBREX [Concomitant]
  8. AMITRIPTYLINE [Concomitant]
  9. DIGOXIN [Concomitant]
  10. PERSANTINE [Concomitant]
  11. ALDACTONE                          /00006201/ [Concomitant]
  12. WARFARIN [Concomitant]
  13. PROZAC [Concomitant]

REACTIONS (1)
  - Death [Fatal]
